FAERS Safety Report 23101738 (Version 1)
Quarter: 2023Q4

REPORT INFORMATION
  Report Type: Spontaneous
  Country: US (occurrence: None)
  Receive Date: 20231025
  Receipt Date: 20231025
  Transmission Date: 20240109
  Serious: No
  Sender: FDA-Public Use
  Company Number: 2023A237268

PATIENT

DRUGS (1)
  1. CALQUENCE [Suspect]
     Active Substance: ACALABRUTINIB
     Route: 048

REACTIONS (5)
  - Immunodeficiency [Unknown]
  - Dehydration [Unknown]
  - Fatigue [Unknown]
  - Herpes zoster [Unknown]
  - Nausea [Unknown]
